FAERS Safety Report 7157508-8 (Version None)
Quarter: 2010Q4

REPORT INFORMATION
  Report Type: 
  Country: None (occurrence: None)
  Receive Date: 20101214
  Receipt Date: 20100420
  Transmission Date: 20110411
  Serious: No
  Sender: FDA-Public Use
  Company Number: US-ASTRAZENECA-2010SE06859

PATIENT
  Age: 59 Year
  Sex: Female
  Weight: 69.4 kg

DRUGS (7)
  1. CRESTOR [Suspect]
     Route: 048
     Dates: start: 20090925, end: 20100108
  2. NIASPAN [Concomitant]
  3. LEVOTHYROXINE [Concomitant]
  4. FISH OIL [Concomitant]
  5. VIT D [Concomitant]
  6. VITAMINS [Concomitant]
  7. TUMS [Concomitant]

REACTIONS (6)
  - ABDOMINAL PAIN [None]
  - ASTHENIA [None]
  - MALAISE [None]
  - MYALGIA [None]
  - NAUSEA [None]
  - WEIGHT DECREASED [None]
